FAERS Safety Report 7552802-0 (Version None)
Quarter: 2011Q2

REPORT INFORMATION
  Report Type: 
  Country: None (occurrence: None)
  Receive Date: 20110616
  Receipt Date: 20110607
  Transmission Date: 20111010
  Serious: Yes (Other)
  Sender: FDA-Public Use
  Company Number: PHHY2011TN51952

PATIENT
  Age: 52 Year
  Sex: Male

DRUGS (2)
  1. ALLOPURINOL [Suspect]
     Dosage: UNK UKN, UNK
  2. AMOXICILLIN [Suspect]
     Dosage: UNK UKN, UNK

REACTIONS (8)
  - DRUG HYPERSENSITIVITY [None]
  - EOSINOPHILIA [None]
  - TRANSAMINASES INCREASED [None]
  - PYREXIA [None]
  - DRUG INTERACTION [None]
  - DRUG RASH WITH EOSINOPHILIA AND SYSTEMIC SYMPTOMS [None]
  - RASH [None]
  - LEUKOCYTOSIS [None]
